FAERS Safety Report 8814483 (Version 3)
Quarter: 2012Q4

REPORT INFORMATION
  Report Type: 
  Country: US (occurrence: US)
  Receive Date: 20120928
  Receipt Date: 20121025
  Transmission Date: 20130627
  Serious: Yes (Other)
  Sender: FDA-Public Use
  Company Number: US-UCBSA-067406

PATIENT
  Age: 48 Year
  Sex: Female

DRUGS (3)
  1. CIMZIA [Suspect]
     Indication: CROHN^S DISEASE
     Dosage: WEEKS 0, 2, AND 4
     Dates: start: 20120816, end: 2012
  2. CIMZIA [Suspect]
     Indication: CROHN^S DISEASE
     Dates: start: 2012
  3. AMITRIPTYLINE [Concomitant]

REACTIONS (6)
  - Gallbladder oedema [Recovered/Resolved]
  - Oedema peripheral [Recovered/Resolved]
  - Migraine [Recovered/Resolved]
  - Gallbladder pain [Recovered/Resolved]
  - Vomiting [Recovered/Resolved]
  - Malaise [Recovered/Resolved]
